FAERS Safety Report 10671381 (Version 1)
Quarter: 2014Q4

REPORT INFORMATION
  Report Type: Spontaneous
  Country: US (occurrence: US)
  Receive Date: 20141223
  Receipt Date: 20141223
  Transmission Date: 20150529
  Serious: No
  Sender: FDA-Public Use
  Company Number: US-009507513-1412USA000178

PATIENT
  Sex: Male

DRUGS (3)
  1. VICTRELIS [Suspect]
     Active Substance: BOCEPREVIR
     Indication: PRODUCT USED FOR UNKNOWN INDICATION
     Dosage: UNK
     Route: 065
     Dates: end: 20121011
  2. REBETOL [Suspect]
     Active Substance: RIBAVIRIN
     Indication: HEPATITIS C
     Dosage: 1200 MG, QD, DIVIDED DOSES
     Route: 048
     Dates: start: 20120912, end: 20121011
  3. PEGASYS [Suspect]
     Active Substance: PEGINTERFERON ALFA-2A
     Indication: HEPATITIS C
     Dosage: 180 MCG, QW
     Route: 058
     Dates: start: 20120912, end: 20121011

REACTIONS (6)
  - Dizziness [Unknown]
  - Presyncope [Unknown]
  - Vision blurred [Unknown]
  - Drug dose omission [Unknown]
  - Arthralgia [Unknown]
  - Depression [Unknown]
